FAERS Safety Report 4823310-2 (Version None)
Quarter: 2005Q4

REPORT INFORMATION
  Report Type: 
  Country: None (occurrence: None)
  Receive Date: 20051109
  Receipt Date: 20051107
  Transmission Date: 20060501
  Serious: Yes (Death)
  Sender: FDA-Public Use
  Company Number: AR-BOEHRINGER INGELHEIM PHARMACEUTICALS, INC.-2005-BP-19334RA

PATIENT
  Sex: Male

DRUGS (1)
  1. COMBIVENT AEROSOL [Suspect]

REACTIONS (1)
  - CARDIAC ARREST [None]
